FAERS Safety Report 8563124-3 (Version None)
Quarter: 2012Q3

REPORT INFORMATION
  Report Type: 
  Country: None (occurrence: None)
  Receive Date: 20120802
  Receipt Date: 20120724
  Transmission Date: 20120928
  Serious: No
  Sender: FDA-Public Use
  Company Number: US-AMGEN-USASP2012046248

PATIENT
  Age: 62 Year
  Sex: Female

DRUGS (2)
  1. METHOTREXATE [Concomitant]
     Dosage: UNK
     Dates: start: 20110601
  2. ENBREL [Suspect]
     Indication: PSORIATIC ARTHROPATHY
     Dosage: 50 MG, QWK
     Dates: start: 20110926

REACTIONS (6)
  - INFECTED BITES [None]
  - ADVERSE DRUG REACTION [None]
  - STAPHYLOCOCCAL INFECTION [None]
  - CELLULITIS [None]
  - BLOOD CREATINE PHOSPHOKINASE INCREASED [None]
  - VULVOVAGINAL MYCOTIC INFECTION [None]
